FAERS Safety Report 21330490 (Version 1)
Quarter: 2022Q3

REPORT INFORMATION
  Report Type: Spontaneous
  Country: US (occurrence: US)
  Receive Date: 20220913
  Receipt Date: 20220913
  Transmission Date: 20221027
  Serious: No
  Sender: FDA-Public Use
  Company Number: US-SA-SAC20220913000733

PATIENT
  Age: 65 Year
  Sex: Male

DRUGS (14)
  1. DUPIXENT [Suspect]
     Active Substance: DUPILUMAB
     Indication: Dermatitis
     Dosage: 300 MG, QOW
     Route: 058
     Dates: start: 20220708
  2. ALLEGRA ALLERGY [Concomitant]
     Active Substance: FEXOFENADINE HYDROCHLORIDE
  3. CLOBETASOL PROPIONATE [Concomitant]
     Active Substance: CLOBETASOL PROPIONATE
  4. FISH OIL [Concomitant]
     Active Substance: FISH OIL
  5. VITAMINS NOS [Concomitant]
     Active Substance: VITAMINS
     Dosage: DAILY
  6. TRIAMCINOLONE ACETONIDE [Concomitant]
     Active Substance: TRIAMCINOLONE ACETONIDE
  7. MELOXICAM [Concomitant]
     Active Substance: MELOXICAM
  8. METOPROLOL TARTRATE [Concomitant]
     Active Substance: METOPROLOL TARTRATE
  9. HYDROXYZINE HYDROCHLORIDE [Concomitant]
     Active Substance: HYDROXYZINE HYDROCHLORIDE
  10. FLOVENT HFA [Concomitant]
     Active Substance: FLUTICASONE PROPIONATE
  11. AZELASTINE HYDROCHLORIDE [Concomitant]
     Active Substance: AZELASTINE HYDROCHLORIDE
  12. HYDROCHLOROTHIAZIDE [Concomitant]
     Active Substance: HYDROCHLOROTHIAZIDE
  13. SIMVASTATIN [Concomitant]
     Active Substance: SIMVASTATIN
  14. LISINOPRIL [Concomitant]
     Active Substance: LISINOPRIL

REACTIONS (2)
  - Product use in unapproved indication [Unknown]
  - Drug ineffective [Unknown]

NARRATIVE: CASE EVENT DATE: 20220708
